FAERS Safety Report 10063474 (Version 1)
Quarter: 2014Q2

REPORT INFORMATION
  Report Type: Spontaneous
  Country: US (occurrence: US)
  Receive Date: 20140407
  Receipt Date: 20140407
  Transmission Date: 20141212
  Serious: No
  Sender: FDA-Public Use
  Company Number: US-009507513-1404USA000263

PATIENT
  Sex: Male

DRUGS (2)
  1. CORICIDIN HCP MAXIMUM STRENGTH FLU [Suspect]
     Indication: PRODUCT USED FOR UNKNOWN INDICATION
     Dosage: UNK, UNKNOWN
     Route: 048
  2. CORICIDIN HCP MAXIMUM STRENGTH FLU [Suspect]
     Dosage: UNK
     Route: 048

REACTIONS (3)
  - Drug effect incomplete [Unknown]
  - Circumstance or information capable of leading to medication error [Unknown]
  - Product quality issue [Unknown]
